FAERS Safety Report 18819184 (Version 2)
Quarter: 2024Q2

REPORT INFORMATION
  Report Type: Spontaneous
  Country: AT (occurrence: AT)
  Receive Date: 20210201
  Receipt Date: 20240520
  Transmission Date: 20240716
  Serious: Yes (Other)
  Sender: FDA-Public Use
  Company Number: AT-ROCHE-2725662

PATIENT
  Age: 64 Year
  Sex: Male

DRUGS (24)
  1. GEMCITABINE [Suspect]
     Active Substance: GEMCITABINE
     Indication: Diffuse large B-cell lymphoma
     Dosage: 4 CYCLES R-GDP
     Route: 065
     Dates: start: 201812
  2. BENDAMUSTINE HYDROCHLORIDE [Suspect]
     Active Substance: BENDAMUSTINE HYDROCHLORIDE
     Indication: Diffuse large B-cell lymphoma
     Dosage: 3 CYCLES
     Route: 065
     Dates: start: 201809
  3. BENDAMUSTINE HYDROCHLORIDE [Suspect]
     Active Substance: BENDAMUSTINE HYDROCHLORIDE
     Dosage: BRIDGING THERAPY
     Route: 065
     Dates: start: 20191205
  4. RITUXIMAB [Suspect]
     Active Substance: RITUXIMAB
     Indication: Diffuse large B-cell lymphoma
     Dosage: BRIDGING THERAPY
     Route: 065
     Dates: start: 20191205
  5. RITUXIMAB [Suspect]
     Active Substance: RITUXIMAB
     Dosage: 2 ADDITIONAL CYCLES R-POLA
     Route: 065
     Dates: start: 202009, end: 202010
  6. RITUXIMAB [Suspect]
     Active Substance: RITUXIMAB
     Dosage: 4 CYCLES RITUXIMAB/POLATUZUMAB
     Route: 065
     Dates: start: 202005, end: 202007
  7. RITUXIMAB [Suspect]
     Active Substance: RITUXIMAB
     Dosage: 4 CYCLES WITH R-GDP
     Route: 065
     Dates: start: 201812
  8. RITUXIMAB [Suspect]
     Active Substance: RITUXIMAB
     Dosage: 6 CYCLES R-CHOP
     Route: 065
     Dates: start: 201611, end: 201704
  9. DOXORUBICIN [Suspect]
     Active Substance: DOXORUBICIN
     Indication: Diffuse large B-cell lymphoma
     Dosage: 6 CYCLES R-CHOP
     Route: 065
     Dates: start: 201611, end: 201704
  10. CISPLATIN [Suspect]
     Active Substance: CISPLATIN
     Indication: Diffuse large B-cell lymphoma
     Dosage: 4 CYCLES R-GDP
     Route: 065
     Dates: start: 201812
  11. CARMUSTINE [Suspect]
     Active Substance: CARMUSTINE
     Indication: Diffuse large B-cell lymphoma
     Dosage: HIGH DOSE BEAM
     Route: 065
     Dates: start: 201903
  12. ETOPOSIDE [Suspect]
     Active Substance: ETOPOSIDE
     Indication: Diffuse large B-cell lymphoma
     Dosage: HIGH DOSE BEAM
     Route: 065
     Dates: start: 201903
  13. DEXAMETHASONE [Suspect]
     Active Substance: DEXAMETHASONE
     Indication: Diffuse large B-cell lymphoma
     Dosage: 4 CYCLES R-GDP
     Route: 065
     Dates: start: 201812
  14. PREDNISONE [Suspect]
     Active Substance: PREDNISONE
     Indication: Diffuse large B-cell lymphoma
     Dosage: 6 CYCLES R-CHOP
     Route: 065
     Dates: start: 201611, end: 201704
  15. FLUDARABINE [Suspect]
     Active Substance: FLUDARABINE PHOSPHATE
     Indication: Lymphocyte adoptive therapy
     Dosage: LYMPHODEPLETING CHEMOTHERAPY
     Route: 065
     Dates: start: 20191223, end: 20191224
  16. CYCLOPHOSPHAMIDE [Suspect]
     Active Substance: CYCLOPHOSPHAMIDE
     Indication: Lymphocyte adoptive therapy
     Dosage: 6 CYCLES R-CHOP
     Route: 065
     Dates: start: 201611, end: 201704
  17. CYCLOPHOSPHAMIDE [Suspect]
     Active Substance: CYCLOPHOSPHAMIDE
     Indication: Diffuse large B-cell lymphoma
     Dosage: LYMPHODEPLETING CHEMOTHERAPY
     Route: 065
     Dates: start: 20191223, end: 20191224
  18. MELPHALAN [Suspect]
     Active Substance: MELPHALAN
     Indication: Diffuse large B-cell lymphoma
     Dosage: HIGH DOSE BEAM
     Route: 065
     Dates: start: 201903
  19. OBINUTUZUMAB [Suspect]
     Active Substance: OBINUTUZUMAB
     Indication: Diffuse large B-cell lymphoma
     Dosage: 3 CYCLES
     Route: 065
     Dates: start: 201809
  20. VINCRISTINE SULFATE [Suspect]
     Active Substance: VINCRISTINE SULFATE
     Indication: Diffuse large B-cell lymphoma
     Dosage: 6 CYCLES R-CHOP
     Route: 065
     Dates: start: 201611, end: 201704
  21. CYTARABINE [Suspect]
     Active Substance: CYTARABINE
     Indication: Diffuse large B-cell lymphoma
     Dosage: HIGH DOSE BEAM
     Route: 065
     Dates: start: 201903
  22. POLATUZUMAB VEDOTIN [Suspect]
     Active Substance: POLATUZUMAB VEDOTIN
     Indication: Diffuse large B-cell lymphoma
     Dosage: 4 CYCLES RITUXIMAB/POLATUZUMAB
     Route: 065
     Dates: start: 202005, end: 202007
  23. POLATUZUMAB VEDOTIN [Suspect]
     Active Substance: POLATUZUMAB VEDOTIN
     Dosage: BRIDGING THERAPY
     Route: 065
     Dates: start: 20191205
  24. POLATUZUMAB VEDOTIN [Suspect]
     Active Substance: POLATUZUMAB VEDOTIN
     Dosage: 2 ADDITIONAL CYCLES R-POLA
     Route: 065
     Dates: start: 202009, end: 202010

REACTIONS (7)
  - Diffuse large B-cell lymphoma [Unknown]
  - Ill-defined disorder [Unknown]
  - Lymphadenopathy [Unknown]
  - Myelosuppression [Unknown]
  - Drug abuse [Unknown]
  - Intentional product use issue [Unknown]
  - Off label use [Unknown]

NARRATIVE: CASE EVENT DATE: 20180701
